FAERS Safety Report 4455889-7 (Version None)
Quarter: 2004Q3

REPORT INFORMATION
  Report Type: 
  Country: None (occurrence: None)
  Receive Date: 20040922
  Receipt Date: 20040914
  Transmission Date: 20050211
  Serious: Yes (Hospitalization)
  Sender: FDA-Public Use
  Company Number: IT-MERCK-0409ITA00019

PATIENT
  Age: 68 Year
  Sex: Male

DRUGS (2)
  1. VIOXX [Suspect]
     Indication: MYALGIA
     Route: 048
     Dates: start: 20040817, end: 20040818
  2. VIOXX [Suspect]
     Indication: MYOSITIS
     Route: 048
     Dates: start: 20040817, end: 20040818

REACTIONS (1)
  - TOXIC SKIN ERUPTION [None]
